FAERS Safety Report 7016290-5 (Version None)
Quarter: 2010Q3

REPORT INFORMATION
  Report Type: 
  Country: None (occurrence: None)
  Receive Date: 20100909
  Receipt Date: 20100511
  Transmission Date: 20110219
  Serious: No
  Sender: FDA-Public Use
  Company Number: 2010SP026647

PATIENT
  Age: 50 Year
  Sex: Female

DRUGS (6)
  1. SAPHRIS [Suspect]
     Indication: BIPOLAR DISORDER
     Dosage: PO
  2. WELLBUTRIN XL (CON.) [Concomitant]
  3. XANAX (CON.) [Concomitant]
  4. REQUIP (CON.) [Concomitant]
  5. TOPAMAX (CON.) [Concomitant]
  6. SONATA (CON.) [Concomitant]

REACTIONS (4)
  - GLOSSODYNIA [None]
  - INCORRECT ROUTE OF DRUG ADMINISTRATION [None]
  - OROPHARYNGEAL BLISTERING [None]
  - STOMATITIS [None]
